FAERS Safety Report 15723949 (Version 1)
Quarter: 2018Q4

REPORT INFORMATION
  Report Type: Spontaneous
  Country: US (occurrence: US)
  Receive Date: 20181214
  Receipt Date: 20181214
  Transmission Date: 20190205
  Serious: Yes (Other)
  Sender: FDA-Public Use
  Company Number: PHEH2018US052194

PATIENT
  Age: 64 Year
  Sex: Male

DRUGS (2)
  1. PROCHLORPERAZINE. [Suspect]
     Active Substance: PROCHLORPERAZINE
     Indication: NAUSEA
     Dosage: UNK UNK, QID
     Route: 065
  2. VOTRIENT [Suspect]
     Active Substance: PAZOPANIB HYDROCHLORIDE
     Indication: RENAL CANCER
     Dosage: 200 MG, QD
     Route: 048
     Dates: start: 20181118

REACTIONS (10)
  - Wound [Unknown]
  - Neoplasm malignant [Unknown]
  - Decreased appetite [Unknown]
  - Ageusia [Unknown]
  - Constipation [Unknown]
  - Second primary malignancy [Unknown]
  - Night sweats [Not Recovered/Not Resolved]
  - Nausea [Recovering/Resolving]
  - Inappropriate schedule of product administration [Unknown]
  - Laziness [Unknown]

NARRATIVE: CASE EVENT DATE: 20181119
